FAERS Safety Report 8033343-3 (Version None)
Quarter: 2012Q1

REPORT INFORMATION
  Report Type: 
  Country: None (occurrence: None)
  Receive Date: 20120110
  Receipt Date: 20111229
  Transmission Date: 20120608
  Serious: Yes (Hospitalization)
  Sender: FDA-Public Use
  Company Number: FR-PFIZER INC-2011295919

PATIENT
  Age: 61 Year
  Sex: Male

DRUGS (4)
  1. RITUXIMAB [Suspect]
     Indication: MANTLE CELL LYMPHOMA RECURRENT
     Dosage: 375 MG/M2, ON DAY 1
     Route: 042
     Dates: start: 20111111
  2. CYTARABINE [Suspect]
     Indication: MANTLE CELL LYMPHOMA RECURRENT
     Dosage: UNK
     Dates: start: 20111111
  3. TEMSIROLIMUS [Suspect]
     Indication: MANTLE CELL LYMPHOMA RECURRENT
     Dosage: 25 MG, 1X/DAY
     Dates: start: 20111111
  4. DEXAMETHASONE [Suspect]
     Indication: MANTLE CELL LYMPHOMA RECURRENT
     Dosage: UNK
     Dates: start: 20111111

REACTIONS (2)
  - CLOSTRIDIUM DIFFICILE COLITIS [None]
  - VOMITING [None]
